FAERS Safety Report 12250448 (Version 1)
Quarter: 2016Q2

REPORT INFORMATION
  Report Type: Spontaneous
  Country: GB (occurrence: GB)
  Receive Date: 20160408
  Receipt Date: 20160408
  Transmission Date: 20160815
  Serious: Yes (Other)
  Sender: FDA-Public Use
  Company Number: GB-TEVA-649005ACC

PATIENT
  Age: 68 Year
  Sex: Female
  Weight: 85 kg

DRUGS (21)
  1. FUROSEMIDE. [Concomitant]
     Active Substance: FUROSEMIDE
     Dosage: 2 DOSAGE FORMS DAILY; IN THE MORNING
     Dates: start: 20150616
  2. OXYNORM [Concomitant]
     Active Substance: OXYCODONE HYDROCHLORIDE
     Dosage: 4-5 TIMES  DAY.
     Dates: start: 20151008
  3. SALBUTAMOL [Concomitant]
     Active Substance: ALBUTEROL
     Route: 055
     Dates: start: 20150713
  4. ZEROCREAM [Concomitant]
     Dosage: APPLY AS DIRECTED
     Dates: start: 20151005
  5. TRIMETHOPRIM. [Suspect]
     Active Substance: TRIMETHOPRIM
     Dates: start: 20160318
  6. TIMODINE [Concomitant]
     Dosage: 3 DOSAGE FORMS DAILY;
     Dates: start: 20140616
  7. LACTULOSE. [Concomitant]
     Active Substance: LACTULOSE
     Dosage: 30 ML DAILY;
     Dates: start: 20150713
  8. SODIUM VALPROATE [Concomitant]
     Active Substance: VALPROATE SODIUM
     Dosage: 3 DOSAGE FORMS DAILY;
     Dates: start: 20141027
  9. ADCAL [Concomitant]
     Active Substance: CALCIUM CARBONATE
     Dosage: 4 DOSAGE FORMS DAILY;
     Dates: start: 20150216
  10. CETIRIZINE [Concomitant]
     Active Substance: CETIRIZINE HYDROCHLORIDE
     Dosage: 1 DOSAGE FORMS DAILY; CAN CAUSE DROWSINESS
     Dates: start: 20160318
  11. CLOTRIMAZOLE. [Concomitant]
     Active Substance: CLOTRIMAZOLE
     Dosage: APPLY 2-3 TIMES/DAY
     Dates: start: 20160318
  12. PREGABALIN. [Concomitant]
     Active Substance: PREGABALIN
     Dosage: 2 DOSAGE FORMS DAILY;
     Dates: start: 20151103
  13. RELTEBON PROLONGED RELEASE [Concomitant]
     Dosage: 2 DOSAGE FORMS DAILY;
     Dates: start: 20150810
  14. ZOPICLONE [Concomitant]
     Active Substance: ZOPICLONE
     Dosage: 1 DOSAGE FORMS DAILY; AT NIGHT
     Dates: start: 20151103
  15. CLARITHROMYCIN. [Concomitant]
     Active Substance: CLARITHROMYCIN
     Dosage: 2 DOSAGE FORMS DAILY; EMERGENCY PACK
     Dates: start: 20150421
  16. FLUTICASONE PROPIONATE. [Concomitant]
     Active Substance: FLUTICASONE PROPIONATE
     Dosage: 2 DOSAGE FORMS DAILY;
     Route: 055
     Dates: start: 20150421
  17. IBUPROFEN. [Concomitant]
     Active Substance: IBUPROFEN
     Dosage: 6 DOSAGE FORMS DAILY;
     Dates: start: 20151103
  18. OMEPRAZOLE. [Concomitant]
     Active Substance: OMEPRAZOLE
     Dosage: 1 DOSAGE FORMS DAILY; IN THE MORNING
     Dates: start: 20151103
  19. PREDNISOLONE. [Concomitant]
     Active Substance: PREDNISOLONE
     Dosage: 1 DOSAGE FORMS DAILY;
     Dates: start: 20140910
  20. SENNA [Concomitant]
     Active Substance: SENNA LEAF\SENNOSIDES\SENNOSIDES A AND B
     Dosage: TAKE 1 OR 2 AT NIGHT
     Dates: start: 20151103
  21. TIOTROPIUM [Concomitant]
     Active Substance: TIOTROPIUM
     Dosage: 1 DOSAGE FORMS DAILY;
     Route: 055
     Dates: start: 20151201

REACTIONS (2)
  - Rash [Recovering/Resolving]
  - Lip swelling [Recovering/Resolving]

NARRATIVE: CASE EVENT DATE: 20160318
